FAERS Safety Report 13113264 (Version 7)
Quarter: 2017Q2

REPORT INFORMATION
  Report Type: Report from Study
  Country: CA (occurrence: CA)
  Receive Date: 20170113
  Receipt Date: 20170529
  Transmission Date: 20170830
  Serious: Yes (Other)
  Sender: FDA-Public Use
  Company Number: CA-GLAXOSMITHKLINE-CA2016GSK173541

PATIENT
  Age: 63 Year
  Sex: Male

DRUGS (17)
  1. ALTACE [Concomitant]
     Active Substance: RAMIPRIL
  2. SIMPONI [Concomitant]
     Active Substance: GOLIMUMAB
  3. TECTA [Concomitant]
     Active Substance: PANTOPRAZOLE MAGNESIUM
  4. AMLODIPINE [Concomitant]
     Active Substance: AMLODIPINE BESYLATE
  5. VITAMIN D [Concomitant]
     Active Substance: CHOLECALCIFEROL
  6. HUMIRA [Concomitant]
     Active Substance: ADALIMUMAB
  7. CELEBREX [Concomitant]
     Active Substance: CELECOXIB
  8. DICLOFENAC SODIUM. [Suspect]
     Active Substance: DICLOFENAC SODIUM
     Indication: PRODUCT USED FOR UNKNOWN INDICATION
     Dosage: UNK
  9. COSENTYX [Suspect]
     Active Substance: SECUKINUMAB
     Dosage: 150 MG, QMO
     Route: 058
     Dates: start: 20161216
  10. COSENTYX [Suspect]
     Active Substance: SECUKINUMAB
     Dosage: 150 MG, QMO
     Route: 058
     Dates: start: 20161116
  11. METHOTREXATE. [Suspect]
     Active Substance: METHOTREXATE
     Indication: PRODUCT USED FOR UNKNOWN INDICATION
  12. ENBREL [Concomitant]
     Active Substance: ETANERCEPT
  13. ASPIRIN. [Concomitant]
     Active Substance: ASPIRIN
  14. MARIJUANA [Concomitant]
     Active Substance: CANNABIS SATIVA SUBSP. INDICA TOP
  15. COSENTYX [Suspect]
     Active Substance: SECUKINUMAB
     Indication: ANKYLOSING SPONDYLITIS
     Dosage: 150 MG, QW
     Route: 058
     Dates: start: 20161019, end: 20161109
  16. COSENTYX [Suspect]
     Active Substance: SECUKINUMAB
     Dosage: 150 QMO
     Route: 058
     Dates: start: 20170127
  17. CYMBALTA [Concomitant]
     Active Substance: DULOXETINE HYDROCHLORIDE

REACTIONS (8)
  - Peripheral swelling [Not Recovered/Not Resolved]
  - Rash pruritic [Recovered/Resolved]
  - Impaired healing [Not Recovered/Not Resolved]
  - Rash papular [Recovered/Resolved]
  - Arthritis bacterial [Not Recovered/Not Resolved]
  - Infection [Not Recovered/Not Resolved]
  - Inappropriate schedule of drug administration [Unknown]
  - Gastroenteritis [Unknown]

NARRATIVE: CASE EVENT DATE: 20161107
